FAERS Safety Report 19920689 (Version 1)
Quarter: 2021Q4

REPORT INFORMATION
  Report Type: Other
  Country: IT (occurrence: IT)
  Receive Date: 20211006
  Receipt Date: 20211006
  Transmission Date: 20220303
  Serious: Yes (Other)
  Sender: FDA-Public Use
  Company Number: IT-NIVAGEN-000007

PATIENT
  Age: 41 Year
  Sex: Male

DRUGS (1)
  1. DECITABINE [Suspect]
     Active Substance: DECITABINE
     Indication: Acute myeloid leukaemia refractory
     Dosage: 4 CYCLES OF DECITABINE 20 MG/MQ INTRAVENOUSLY PER DAY ON DAYS 1-5, OF A 4-5 WEEK INTERVAL.

REACTIONS (2)
  - Neutropenia [Unknown]
  - Acute myeloid leukaemia recurrent [Unknown]
